FAERS Safety Report 5099465-4 (Version None)
Quarter: 2006Q3

REPORT INFORMATION
  Report Type: 
  Country: None (occurrence: None)
  Receive Date: 20060908
  Receipt Date: 20060828
  Transmission Date: 20061208
  Serious: Yes (Other)
  Sender: FDA-Public Use
  Company Number: GR-BRISTOL-MYERS SQUIBB COMPANY-13490800

PATIENT
  Age: 48 Year
  Sex: Male

DRUGS (3)
  1. PRAVASTATIN SODIUM [Suspect]
     Indication: HYPERCHOLESTEROLAEMIA
  2. GLIBENCLAMIDE [Concomitant]
  3. PERINDOPRIL ERBUMINE [Concomitant]

REACTIONS (1)
  - DYSTROPHIA MYOTONICA [None]
